FAERS Safety Report 5179569-8 (Version None)
Quarter: 2006Q4

REPORT INFORMATION
  Report Type: 
  Country: None (occurrence: None)
  Receive Date: 20061219
  Receipt Date: 20061211
  Transmission Date: 20070319
  Serious: Yes (Hospitalization)
  Sender: FDA-Public Use
  Company Number: NZ-ROXANE LABORATORIES, INC-2006-BP-14353RO

PATIENT
  Age: 65 Year
  Sex: Male

DRUGS (16)
  1. AZATHIOPRINE [Suspect]
     Indication: CROHN'S DISEASE
     Dosage: 100 MG/DAY
  2. PREDNISONE TAB [Suspect]
     Indication: CROHN'S DISEASE
  3. MESALAZINE [Suspect]
     Indication: CROHN'S DISEASE
  4. AMLODIPINE [Concomitant]
  5. ASPIRIN [Concomitant]
  6. ATENOLOL [Concomitant]
  7. BENDROFLUAZIDE [Concomitant]
  8. CARBAMAZEPINE [Concomitant]
  9. ACETAMINOPHEN [Concomitant]
  10. PAROXETINE HCL [Concomitant]
  11. QUINAPRIL [Concomitant]
  12. TEMAZEPAM [Concomitant]
  13. STEROID AND BRONCHODILATOR INHALERS [Concomitant]
     Route: 055
  14. IRON [Concomitant]
  15. POTASSIUM ACETATE [Concomitant]
  16. GLYCERYL TRINITRATE [Concomitant]

REACTIONS (7)
  - BONE MARROW FAILURE [None]
  - DRUG INEFFECTIVE [None]
  - INFECTION [None]
  - MYELODYSPLASTIC SYNDROME [None]
  - NEUTROPENIC SEPSIS [None]
  - OPPORTUNISTIC INFECTION [None]
  - PANCYTOPENIA [None]
